FAERS Safety Report 16790883 (Version 1)
Quarter: 2019Q4

REPORT INFORMATION
  Report Type: Spontaneous
  Country: US (occurrence: US)
  Receive Date: 20190909
  Receipt Date: 20190909
  Transmission Date: 20200122
  Serious: Yes (Other)
  Sender: FDA-Public Use
  Company Number: None

PATIENT
  Age: 50 Year
  Sex: Female
  Weight: 66.15 kg

DRUGS (2)
  1. ALKA SELTZER PLUS COLD DAY AND NIGHT EFFERVESCENT [Suspect]
     Active Substance: ASPIRIN\DEXTROMETHORPHAN HYDROBROMIDE\PHENYLEPHRINE BITARTRATE
     Indication: UPPER-AIRWAY COUGH SYNDROME
  2. ALKA SELTZER PLUS COLD DAY AND NIGHT EFFERVESCENT [Suspect]
     Active Substance: ASPIRIN\DEXTROMETHORPHAN HYDROBROMIDE\PHENYLEPHRINE BITARTRATE
     Indication: SINUSITIS

REACTIONS (4)
  - Nausea [None]
  - Pyrexia [None]
  - Fatigue [None]
  - Haematochezia [None]

NARRATIVE: CASE EVENT DATE: 20190908
